FAERS Safety Report 9455842 (Version 1)
Quarter: 2013Q3

REPORT INFORMATION
  Report Type: Spontaneous
  Country: US (occurrence: US)
  Receive Date: 20130813
  Receipt Date: 20130813
  Transmission Date: 20140515
  Serious: No
  Sender: FDA-Public Use
  Company Number: US-PFIZER INC-2013132751

PATIENT
  Age: 74 Year
  Sex: Female

DRUGS (5)
  1. ZITHROMAX [Suspect]
     Indication: COUGH
     Dosage: UNK
     Dates: start: 20130409, end: 20130413
  2. ZITHROMAX [Suspect]
     Indication: EAR DISORDER
  3. ZITHROMAX [Suspect]
     Indication: DYSPNOEA
  4. BYSTOLIC [Suspect]
     Indication: HYPERTENSION
     Dosage: 10 MG, 2X/DAY
     Route: 048
     Dates: start: 201303, end: 201304
  5. BYSTOLIC [Suspect]
     Dosage: 5 MG, 1X/DAY
     Dates: start: 201304

REACTIONS (3)
  - Drug ineffective for unapproved indication [Unknown]
  - Hypersensitivity [Unknown]
  - Eye inflammation [Not Recovered/Not Resolved]
